FAERS Safety Report 10190046 (Version 1)
Quarter: 2014Q2

REPORT INFORMATION
  Report Type: Spontaneous
  Country: US (occurrence: US)
  Receive Date: 20140522
  Receipt Date: 20140522
  Transmission Date: 20141212
  Serious: Yes (Other)
  Sender: FDA-Public Use
  Company Number: US-AMGEN-USASP2014036858

PATIENT
  Age: 56 Year
  Sex: Female

DRUGS (4)
  1. ENBREL [Suspect]
     Indication: RHEUMATOID ARTHRITIS
     Dosage: 50 MG, QWK
     Route: 065
     Dates: start: 20121201, end: 2013
  2. ARAVA [Concomitant]
     Route: 065
  3. METHOTREXATE [Concomitant]
     Route: 065
  4. CIMZIA [Concomitant]
     Route: 065

REACTIONS (3)
  - Rheumatoid arthritis [Recovered/Resolved]
  - Adverse drug reaction [Recovered/Resolved]
  - Drug ineffective [Recovered/Resolved]
